FAERS Safety Report 4994818-4 (Version None)
Quarter: 2006Q2

REPORT INFORMATION
  Report Type: 
  Country: None (occurrence: None)
  Receive Date: 20060504
  Receipt Date: 20060425
  Transmission Date: 20061013
  Serious: Yes (Hospitalization)
  Sender: FDA-Public Use
  Company Number: 163-21880-06040858

PATIENT

DRUGS (1)
  1. REVLIMID [Suspect]
     Dosage: ORAL
     Route: 048

REACTIONS (2)
  - PULMONARY ALVEOLAR HAEMORRHAGE [None]
  - PULMONARY TOXICITY [None]
